FAERS Safety Report 13261173 (Version 3)
Quarter: 2017Q4

REPORT INFORMATION
  Report Type: Report from Study
  Country: CA (occurrence: CA)
  Receive Date: 20170222
  Receipt Date: 20171012
  Transmission Date: 20180320
  Serious: Yes (Other)
  Sender: FDA-Public Use
  Company Number: CA-INCYTE CORPORATION-2017IN001137

PATIENT

DRUGS (1)
  1. JAKAVI [Suspect]
     Active Substance: RUXOLITINIB
     Indication: POLYCYTHAEMIA VERA
     Dosage: 10 MG, BID
     Route: 048
     Dates: start: 20170118

REACTIONS (7)
  - Pruritus [Recovered/Resolved]
  - Rash papular [Unknown]
  - Platelet count decreased [Unknown]
  - Diabetes mellitus [Recovering/Resolving]
  - Therapeutic response unexpected [Unknown]
  - Insomnia [Recovering/Resolving]
  - Rash [Unknown]
